APPROVED DRUG PRODUCT: ACAMPROSATE CALCIUM
Active Ingredient: ACAMPROSATE CALCIUM
Strength: 333MG
Dosage Form/Route: TABLET, DELAYED RELEASE;ORAL
Application: A200143 | Product #001
Applicant: BARR LABORATORIES INC SUB TEVA PHARMACEUTICALS USA
Approved: Nov 18, 2013 | RLD: No | RS: No | Type: DISCN